FAERS Safety Report 21375725 (Version 1)
Quarter: 2022Q3

REPORT INFORMATION
  Report Type: Spontaneous
  Country: ES (occurrence: ES)
  Receive Date: 20220926
  Receipt Date: 20220926
  Transmission Date: 20221027
  Serious: Yes (Hospitalization)
  Sender: FDA-Public Use
  Company Number: ES-AMRYT PHARMACEUTICALS DAC-AEGR006032

PATIENT
  Sex: Female

DRUGS (1)
  1. LOMITAPIDE [Suspect]
     Active Substance: LOMITAPIDE
     Indication: Type IIa hyperlipidaemia
     Dosage: 15 MILLIGRAM
     Route: 048
     Dates: start: 20210415

REACTIONS (1)
  - Appendicitis [Recovered/Resolved]
